FAERS Safety Report 25496005 (Version 1)
Quarter: 2025Q2

REPORT INFORMATION
  Report Type: Spontaneous
  Country: US (occurrence: US)
  Receive Date: 20250630
  Receipt Date: 20250630
  Transmission Date: 20250717
  Serious: Yes (Other)
  Sender: IMPEL NEUROPHARMA
  Company Number: US-IMPEL-2025-US-030892

PATIENT
  Age: 46 Year
  Sex: Female

DRUGS (3)
  1. NURTEC ODT [Concomitant]
     Active Substance: RIMEGEPANT SULFATE
  2. VYEPTI [Concomitant]
     Active Substance: EPTINEZUMAB-JJMR
  3. TRUDHESA [Suspect]
     Active Substance: DIHYDROERGOTAMINE MESYLATE
     Indication: Product used for unknown indication
     Route: 045
     Dates: start: 20250211

REACTIONS (1)
  - Seizure [Unknown]
